FAERS Safety Report 20410496 (Version 1)
Quarter: 2022Q1

REPORT INFORMATION
  Report Type: Spontaneous
  Country: US (occurrence: None)
  Receive Date: 20220131
  Receipt Date: 20220131
  Transmission Date: 20220423
  Serious: Yes (Hospitalization)
  Sender: FDA-Public Use
  Company Number: None

PATIENT
  Age: 79 Year
  Sex: Male
  Weight: 78 kg

DRUGS (2)
  1. LISINOPRIL [Suspect]
     Active Substance: LISINOPRIL
     Indication: Cardiovascular disorder
     Dates: start: 20151229, end: 20211215
  2. LISINOPRIL [Suspect]
     Active Substance: LISINOPRIL
     Indication: Surgery

REACTIONS (1)
  - Angioedema [None]

NARRATIVE: CASE EVENT DATE: 20211215
